FAERS Safety Report 13422780 (Version 1)
Quarter: 2017Q2

REPORT INFORMATION
  Report Type: Spontaneous
  Country: DE (occurrence: DE)
  Receive Date: 20170410
  Receipt Date: 20170410
  Transmission Date: 20170830
  Serious: Yes (Other)
  Sender: FDA-Public Use
  Company Number: DE-GUERBET-DE-20160156

PATIENT
  Age: 69 Year
  Sex: Male
  Weight: 88 kg

DRUGS (2)
  1. DOTAREM [Suspect]
     Active Substance: GADOTERATE MEGLUMINE
     Indication: NUCLEAR MAGNETIC RESONANCE IMAGING
     Route: 042
     Dates: start: 20160628, end: 20160628
  2. ASS 75 [Concomitant]
     Indication: PROPHYLAXIS
     Route: 065
     Dates: start: 2002

REACTIONS (5)
  - Palpitations [Recovered/Resolved]
  - Atrial fibrillation [Recovered/Resolved]
  - Tachyarrhythmia [Recovered/Resolved]
  - Diastolic dysfunction [Recovered/Resolved]
  - Extrasystoles [Recovered/Resolved]

NARRATIVE: CASE EVENT DATE: 20160628
